FAERS Safety Report 6409880-1 (Version None)
Quarter: 2009Q4

REPORT INFORMATION
  Report Type: 
  Country: None (occurrence: None)
  Receive Date: 20091022
  Receipt Date: 20091015
  Transmission Date: 20100525
  Serious: No
  Sender: FDA-Public Use
  Company Number: US-B.I. PHARMACEUTICALS,INC./RIDGEFIELD-2009-BP-12053BP

PATIENT
  Sex: Male

DRUGS (2)
  1. COMBIVENT [Suspect]
     Indication: CHRONIC OBSTRUCTIVE PULMONARY DISEASE
     Route: 055
     Dates: start: 20090901, end: 20090928
  2. COMBIVENT [Suspect]
     Dosage: 16 PUF
     Route: 055
     Dates: start: 20090929

REACTIONS (2)
  - DYSPNOEA [None]
  - OVERDOSE [None]
